FAERS Safety Report 6394420-6 (Version None)
Quarter: 2009Q4

REPORT INFORMATION
  Report Type: 
  Country: None (occurrence: None)
  Receive Date: 20091006
  Receipt Date: 20090925
  Transmission Date: 20100525
  Serious: Yes (Other)
  Sender: FDA-Public Use
  Company Number: DSA_41733_2009

PATIENT
  Sex: Male

DRUGS (1)
  1. WELLBUTRIN XL [Suspect]
     Indication: DRUG USE FOR UNKNOWN INDICATION
     Dosage: 150 MG QD
     Dates: start: 20090801, end: 20090923

REACTIONS (8)
  - ASTHENIA [None]
  - CHOLESTASIS [None]
  - HEPATITIS [None]
  - JAUNDICE [None]
  - RED BLOOD CELL ABNORMALITY [None]
  - TACHYPHRENIA [None]
  - VISION BLURRED [None]
  - YELLOW SKIN [None]
